FAERS Safety Report 7596711-X (Version None)
Quarter: 2011Q3

REPORT INFORMATION
  Report Type: 
  Country: None (occurrence: None)
  Receive Date: 20110708
  Receipt Date: 20110624
  Transmission Date: 20111222
  Serious: No
  Sender: FDA-Public Use
  Company Number: DE-MYLANLABS-2011S1013104

PATIENT
  Age: 89 Year
  Sex: Female

DRUGS (1)
  1. ALENDRONATE SODIUM [Suspect]
     Indication: PRODUCT USED FOR UNKNOWN INDICATION
     Route: 048
     Dates: start: 20031101, end: 20051201

REACTIONS (2)
  - FISTULA [None]
  - OSTEOMYELITIS [None]
